FAERS Safety Report 4434440-1 (Version None)
Quarter: 2004Q3

REPORT INFORMATION
  Report Type: 
  Country: None (occurrence: None)
  Receive Date: 20040726
  Receipt Date: 20040226
  Transmission Date: 20050211
  Serious: No
  Sender: FDA-Public Use
  Company Number: USA040259175

PATIENT
  Age: 85 Year
  Sex: Female

DRUGS (10)
  1. FORTEO [Suspect]
     Indication: OSTEOPOROSIS
     Dates: start: 20040101
  2. ALTACE [Concomitant]
  3. ZOCOR [Concomitant]
  4. METOPROLOL SUCCINATE [Concomitant]
  5. FOSAMAX [Concomitant]
  6. TYLENOL [Concomitant]
  7. FOLIC ACID [Concomitant]
  8. B PLUS   VITAMIN C [Concomitant]
  9. FISH OIL [Concomitant]
  10. NITROGLYCERIN [Concomitant]

REACTIONS (2)
  - CHEST PAIN [None]
  - HEART RATE INCREASED [None]
